FAERS Safety Report 8601348-7 (Version None)
Quarter: 2012Q3

REPORT INFORMATION
  Report Type: 
  Country: None (occurrence: None)
  Receive Date: 20120817
  Receipt Date: 20120808
  Transmission Date: 20120928
  Serious: Yes (Other)
  Sender: FDA-Public Use
  Company Number: SE-JNJFOC-20120802884

PATIENT
  Sex: Male
  Weight: 73.4 kg

DRUGS (3)
  1. PALIPERIDONE [Suspect]
     Indication: PRODUCT USED FOR UNKNOWN INDICATION
     Dosage: 07-OCT (UNSPECIFIED YEAR)
     Route: 030
  2. PALIPERIDONE [Suspect]
     Dosage: 02-AUG (UNSPECIFIED YEAR)
     Route: 030
  3. INVEGA [Suspect]
     Indication: PRODUCT USED FOR UNKNOWN INDICATION
     Route: 048

REACTIONS (2)
  - PSYCHOTIC BEHAVIOUR [None]
  - CEREBRAL PALSY [None]
